FAERS Safety Report 11812522 (Version 2)
Quarter: 2015Q4

REPORT INFORMATION
  Report Type: Spontaneous
  Country: ES (occurrence: ES)
  Receive Date: 20151208
  Receipt Date: 20151210
  Transmission Date: 20160305
  Serious: Yes (Death)
  Sender: FDA-Public Use
  Company Number: ES-ABBVIE-15P-144-1513537-00

PATIENT
  Age: 71 Year
  Sex: Male

DRUGS (1)
  1. DUODOPA [Suspect]
     Active Substance: CARBIDOPA\LEVODOPA
     Indication: PARKINSON^S DISEASE
     Route: 050

REACTIONS (4)
  - Arrhythmia [Fatal]
  - Aspiration bronchial [Fatal]
  - Respiratory arrest [Fatal]
  - Parkinson^s disease [Unknown]

NARRATIVE: CASE EVENT DATE: 20151125
